FAERS Safety Report 7723754-5 (Version None)
Quarter: 2011Q3

REPORT INFORMATION
  Report Type: 
  Country: None (occurrence: None)
  Receive Date: 20110901
  Receipt Date: 20110830
  Transmission Date: 20111222
  Serious: Yes (Hospitalization)
  Sender: FDA-Public Use
  Company Number: US-ELI_LILLY_AND_COMPANY-US201108000599

PATIENT
  Sex: Male
  Weight: 74.83 kg

DRUGS (6)
  1. LIPITOR [Concomitant]
     Dosage: 80 MG, QD
     Route: 048
  2. ASPIRIN [Concomitant]
     Dosage: 325 MG, QD
     Route: 048
  3. EFFIENT [Suspect]
     Dosage: 10 MG, QD
     Dates: start: 20110131
  4. LUMIGAN [Concomitant]
     Dosage: 1 DF, EACH EVENING
  5. LISINOPRIL [Concomitant]
     Dosage: 10 MG, QD
     Route: 048
  6. TOPROL-XL [Concomitant]
     Dosage: 25 MG, UNK
     Route: 048

REACTIONS (1)
  - ANGINA PECTORIS [None]
